FAERS Safety Report 6704556-5 (Version None)
Quarter: 2010Q2

REPORT INFORMATION
  Report Type: 
  Country: None (occurrence: None)
  Receive Date: 20100430
  Receipt Date: 20100423
  Transmission Date: 20101027
  Serious: Yes (Hospitalization)
  Sender: FDA-Public Use
  Company Number: PHHO2010FR05082

PATIENT
  Sex: Female

DRUGS (4)
  1. NEORAL [Suspect]
     Indication: RENAL TRANSPLANT
     Dosage: 110 MG, BID
     Route: 048
     Dates: start: 20100222
  2. MYCOPHENOLIC ACID [Suspect]
     Indication: RENAL TRANSPLANT
     Dosage: 720 MG, BID
     Dates: start: 20100222
  3. CANDESARTAN CILEXETIL [Concomitant]
  4. SOLUPRED [Concomitant]

REACTIONS (3)
  - HYPERCALCAEMIA [None]
  - HYPERPARATHYROIDISM [None]
  - PARATHYROIDECTOMY [None]
